FAERS Safety Report 7539455-2 (Version None)
Quarter: 2011Q2

REPORT INFORMATION
  Report Type: 
  Country: None (occurrence: None)
  Receive Date: 20110609
  Receipt Date: 20110609
  Transmission Date: 20111010
  Serious: Yes (Disabling, Other)
  Sender: FDA-Public Use
  Company Number: None

PATIENT
  Sex: Female
  Weight: 63.5036 kg

DRUGS (6)
  1. CLYCOLIC WASHES [Concomitant]
  2. TRETINOIN [Concomitant]
  3. TCA PEELS [Concomitant]
  4. JESSNERS PEEL [Concomitant]
  5. HYDROQUINONE 10% 10% [Suspect]
     Indication: SKIN DISCOLOURATION
     Dosage: .005 OZ 1X DAILY 3060
     Dates: start: 20110501
  6. BODY LOTIONS [Concomitant]

REACTIONS (4)
  - SKIN INFECTION [None]
  - PRODUCT CONTAMINATION MICROBIAL [None]
  - SKIN DISCOLOURATION [None]
  - SELF-MEDICATION [None]
